FAERS Safety Report 4282595-4 (Version None)
Quarter: 2004Q1

REPORT INFORMATION
  Report Type: 
  Country: None (occurrence: None)
  Receive Date: 20040130
  Receipt Date: 20020808
  Transmission Date: 20041129
  Serious: No
  Sender: FDA-Public Use
  Company Number: US-BRISTOL-MYERS SQUIBB COMPANY-11988540

PATIENT
  Age: 41 Year
  Sex: Male
  Weight: 91 kg

DRUGS (4)
  1. SERZONE [Suspect]
     Indication: ANXIETY
     Dosage: STARTED ON SAMPLES IN A ^RAMPED UP DOSAGE^,THEN PRESCRIPTION FILLED FOR 200MG BID
     Route: 048
     Dates: start: 20010917, end: 20020101
  2. INDOCIN [Concomitant]
  3. ALPRAZOLAM [Concomitant]
     Dates: start: 20010829
  4. VALTREX [Concomitant]

REACTIONS (14)
  - ABDOMINAL PAIN [None]
  - ALANINE AMINOTRANSFERASE INCREASED [None]
  - ASPARTATE AMINOTRANSFERASE INCREASED [None]
  - ASTHENIA [None]
  - CHROMATURIA [None]
  - CONSTIPATION [None]
  - DIZZINESS [None]
  - DRY MOUTH [None]
  - ERECTION INCREASED [None]
  - FAECES DISCOLOURED [None]
  - GASTROINTESTINAL PAIN [None]
  - HYPERCHOLESTEROLAEMIA [None]
  - NAUSEA [None]
  - RASH [None]
